FAERS Safety Report 6181319-3 (Version None)
Quarter: 2009Q2

REPORT INFORMATION
  Report Type: 
  Country: None (occurrence: None)
  Receive Date: 20090506
  Receipt Date: 20090427
  Transmission Date: 20091009
  Serious: Yes (Other)
  Sender: FDA-Public Use
  Company Number: BR-PFIZER INC-2009204055

PATIENT

DRUGS (1)
  1. EPELIN [Suspect]
     Dosage: UNK
     Route: 048

REACTIONS (2)
  - CONVULSION [None]
  - MALAISE [None]
